FAERS Safety Report 4860941-8 (Version None)
Quarter: 2005Q4

REPORT INFORMATION
  Report Type: 
  Country: None (occurrence: None)
  Receive Date: 20051220
  Receipt Date: 20051209
  Transmission Date: 20060501
  Serious: Yes (Other)
  Sender: FDA-Public Use
  Company Number: CA-BRISTOL-MYERS SQUIBB COMPANY-13219845

PATIENT
  Age: 41 Year
  Sex: Female

DRUGS (8)
  1. GATIFLOXACIN [Suspect]
     Route: 042
  2. ASPIRIN [Concomitant]
     Route: 048
  3. CARVEDILOL [Concomitant]
     Route: 048
  4. ENOXAPARIN SODIUM [Concomitant]
     Route: 058
  5. FUROSEMIDE [Concomitant]
     Route: 048
  6. GLYBURIDE [Concomitant]
  7. INSULIN [Concomitant]
  8. ZOPICLON [Concomitant]
     Route: 048

REACTIONS (1)
  - HYPOGLYCAEMIA [None]
